FAERS Safety Report 23369898 (Version 1)
Quarter: 2024Q1

REPORT INFORMATION
  Report Type: Other
  Country: US (occurrence: US)
  Receive Date: 20240105
  Receipt Date: 20240105
  Transmission Date: 20240410
  Serious: Yes (Life-Threatening, Hospitalization, Other)
  Sender: FDA-Public Use
  Company Number: US-SERVIER-S24000007

PATIENT

DRUGS (7)
  1. PEGASPARGASE [Suspect]
     Active Substance: PEGASPARGASE
     Indication: B-cell type acute leukaemia
     Dosage: 2500 IU/M2, OVER 1-2 HOURS, INDUCTION D4, CONSOLIDATION D15, D43)
     Route: 042
     Dates: start: 201810, end: 201902
  2. CYTARABINE [Suspect]
     Active Substance: CYTARABINE
     Indication: B-cell type acute leukaemia
     Dosage: UNK, INDUCTION D1
     Route: 037
     Dates: start: 201810, end: 201902
  3. VINCRISTINE [Suspect]
     Active Substance: VINCRISTINE
     Indication: B-cell type acute leukaemia
     Dosage: 1.5 MG/M2, INDUCTION D1,8,15,22
     Route: 042
     Dates: start: 201810, end: 201902
  4. DAUNORUBICIN [Suspect]
     Active Substance: DAUNORUBICIN
     Indication: B-cell type acute leukaemia
     Dosage: 25 MG/M2, INDUCTION D1,8,15,22
     Route: 042
     Dates: start: 201810, end: 201902
  5. PREDNISONE [Suspect]
     Active Substance: PREDNISONE
     Indication: B-cell type acute leukaemia
     Dosage: 60 MG/M2, QD, INDUCTION DAYS 1-28
     Route: 048
     Dates: start: 201810, end: 201902
  6. METHOTREXATE [Suspect]
     Active Substance: METHOTREXATE
     Indication: B-cell type acute leukaemia
     Dosage: UNK, INDUCTION DAYS 8,29
     Route: 037
     Dates: start: 201810, end: 201902
  7. BLINATUMOMAB [Suspect]
     Active Substance: BLINATUMOMAB
     Indication: B-cell type acute leukaemia
     Dosage: 0.015 MG/M2, QD, 28 DAYS OF CONTINUOUS INFUSION FOLLOWED BY 1-WEEK BREAK
     Route: 042
     Dates: start: 201812, end: 202105

REACTIONS (11)
  - Multiple organ dysfunction syndrome [Recovered/Resolved]
  - Ventricular arrhythmia [Recovered/Resolved]
  - Torsade de pointes [Recovered/Resolved]
  - Febrile neutropenia [Recovered/Resolved]
  - Hypertension [Recovered/Resolved]
  - Fungaemia [Recovered/Resolved]
  - Syncope [Recovered/Resolved]
  - Asthenia [Recovered/Resolved]
  - Pseudomonal sepsis [Recovered/Resolved]
  - Aspergillus infection [Recovered/Resolved]
  - Myelosuppression [Recovered/Resolved]

NARRATIVE: CASE EVENT DATE: 20181001
